FAERS Safety Report 7743078-X (Version None)
Quarter: 2011Q3

REPORT INFORMATION
  Report Type: 
  Country: None (occurrence: None)
  Receive Date: 20110912
  Receipt Date: 20110829
  Transmission Date: 20111222
  Serious: Yes (Hospitalization)
  Sender: FDA-Public Use
  Company Number: US-ELI_LILLY_AND_COMPANY-US201108008376

PATIENT
  Sex: Male

DRUGS (1)
  1. FORTEO [Suspect]
     Indication: OSTEOPOROSIS
     Dosage: 20 UG, QD
     Dates: start: 20110101, end: 20110828

REACTIONS (6)
  - HYPOTENSION [None]
  - HEAT STROKE [None]
  - BLOOD POTASSIUM INCREASED [None]
  - BRONCHITIS [None]
  - MALAISE [None]
  - BLOOD SODIUM DECREASED [None]
